FAERS Safety Report 21112242 (Version 4)
Quarter: 2022Q3

REPORT INFORMATION
  Report Type: Report from Study
  Country: AR (occurrence: AR)
  Receive Date: 20220721
  Receipt Date: 20220907
  Transmission Date: 20221027
  Serious: Yes (Life-Threatening, Other)
  Sender: FDA-Public Use
  Company Number: AR-Merck Healthcare KGaA-9336285

PATIENT
  Age: 61 Year
  Sex: Male

DRUGS (3)
  1. CETUXIMAB [Suspect]
     Active Substance: CETUXIMAB
     Indication: Product used for unknown indication
     Dosage: 500 MG/M2, 2/M
     Route: 042
     Dates: start: 20220707
  2. BENADRYL [Concomitant]
     Active Substance: DIPHENHYDRAMINE HYDROCHLORIDE
     Indication: Premedication
     Dosage: 4 MG, UNKNOWN
     Route: 065
     Dates: start: 20220725
  3. DEXAMETHASONE [Concomitant]
     Active Substance: DEXAMETHASONE
     Indication: Premedication
     Dosage: 4 MG, UNKNOWN
     Route: 065
     Dates: start: 20220725

REACTIONS (4)
  - Cardio-respiratory arrest [Recovered/Resolved]
  - Asphyxia [Recovered/Resolved]
  - Bronchospasm [Recovered/Resolved]
  - Off label use [Unknown]

NARRATIVE: CASE EVENT DATE: 20220707
